FAERS Safety Report 6413084-6 (Version None)
Quarter: 2009Q4

REPORT INFORMATION
  Report Type: 
  Country: None (occurrence: None)
  Receive Date: 20091022
  Receipt Date: 20091022
  Transmission Date: 20100525
  Serious: Yes (Hospitalization)
  Sender: FDA-Public Use
  Company Number: None

PATIENT
  Age: 15 Year
  Sex: Male
  Weight: 65 kg

DRUGS (1)
  1. NEULASTA [Suspect]
     Indication: ACUTE LYMPHOCYTIC LEUKAEMIA RECURRENT
     Dosage: 6MG ONE TIME SQ (ONE TIME)
     Route: 058
     Dates: start: 20091020, end: 20091020

REACTIONS (1)
  - URTICARIA [None]
